FAERS Safety Report 9925435 (Version 1)
Quarter: 2014Q1

REPORT INFORMATION
  Report Type: Spontaneous
  Country: US (occurrence: US)
  Receive Date: 20140226
  Receipt Date: 20140226
  Transmission Date: 20141002
  Serious: Yes (Other)
  Sender: FDA-Public Use
  Company Number: US-TEVA-465012USA

PATIENT
  Age: 40 Year
  Sex: Female
  Weight: 103.06 kg

DRUGS (4)
  1. PARAGARD 380A [Suspect]
     Indication: CONTRACEPTION
     Route: 015
     Dates: start: 20140212, end: 20140214
  2. LABETELOL [Concomitant]
     Indication: HYPERTENSION
  3. PRENATAL VITAMINS [Concomitant]
     Indication: VITAMIN SUPPLEMENTATION
  4. IRON SUPPLEMENT [Concomitant]
     Indication: MINERAL SUPPLEMENTATION

REACTIONS (1)
  - Device dislocation [Recovered/Resolved]
